FAERS Safety Report 9310186 (Version 3)
Quarter: 2013Q4

REPORT INFORMATION
  Report Type: Spontaneous
  Country: IT (occurrence: IT)
  Receive Date: 20130527
  Receipt Date: 20131106
  Transmission Date: 20140711
  Serious: Yes (Other)
  Sender: FDA-Public Use
  Company Number: IT-ACCORD-017759

PATIENT
  Age: 75 Year
  Sex: Female
  Weight: 64 kg

DRUGS (4)
  1. SOLDESAM [Concomitant]
     Route: 042
     Dates: start: 20130314, end: 20130614
  2. ONDANSETRON [Concomitant]
     Route: 042
     Dates: start: 20130314, end: 20130614
  3. GEMCITABINE [Suspect]
     Indication: PANCREATIC CARCINOMA
     Route: 042
     Dates: start: 20130314, end: 20130614
  4. RANIDIL [Concomitant]
     Route: 042
     Dates: start: 20130314, end: 20130614

REACTIONS (6)
  - Dermatitis acneiform [Recovering/Resolving]
  - Abdominal pain upper [Recovering/Resolving]
  - Conjunctivitis [Recovering/Resolving]
  - Constipation [Recovering/Resolving]
  - Vomiting [Recovering/Resolving]
  - Hyperpyrexia [Unknown]
